FAERS Safety Report 25601241 (Version 5)
Quarter: 2025Q4

REPORT INFORMATION
  Report Type: Report from Study
  Country: US (occurrence: US)
  Receive Date: 20250724
  Receipt Date: 20251128
  Transmission Date: 20260117
  Serious: Yes (Other)
  Sender: TAKEDA
  Company Number: US-TAKEDA-2025TUS065401

PATIENT
  Age: 32 Year
  Sex: Female

DRUGS (1)
  1. HUMAN IMMUNOGLOBULIN G [Suspect]
     Active Substance: HUMAN IMMUNOGLOBULIN G
     Indication: Product used for unknown indication
     Dosage: UNK

REACTIONS (11)
  - Stillbirth [Unknown]
  - Immunodeficiency [Unknown]
  - Shock [Unknown]
  - Pregnancy [Recovered/Resolved]
  - Product availability issue [Unknown]
  - High risk pregnancy [Unknown]
  - Hypersensitivity [Recovered/Resolved]
  - Inappropriate schedule of product administration [Unknown]
  - Product use issue [Recovering/Resolving]
  - Product dose omission issue [Unknown]
  - Postpartum disorder [Unknown]

NARRATIVE: CASE EVENT DATE: 20251022
